FAERS Safety Report 19024470 (Version 5)
Quarter: 2022Q1

REPORT INFORMATION
  Report Type: Report from Study
  Country: DE (occurrence: DE)
  Receive Date: 20210318
  Receipt Date: 20220329
  Transmission Date: 20220423
  Serious: Yes (Hospitalization, Other)
  Sender: FDA-Public Use
  Company Number: NVSC2021DE044172

PATIENT
  Age: 20 Year
  Sex: Male
  Weight: 79.8 kg

DRUGS (6)
  1. MIDOSTAURIN [Suspect]
     Active Substance: MIDOSTAURIN
     Indication: Acute myeloid leukaemia
     Dosage: 100 MG, QD
     Route: 048
     Dates: start: 20210217, end: 20210222
  2. GEMTUZUMAB OZOGAMICIN [Suspect]
     Active Substance: GEMTUZUMAB OZOGAMICIN
     Indication: Acute myeloid leukaemia
     Dosage: 4.5 MG, QD
     Route: 042
     Dates: start: 20210210
  3. UNSPECIFIED INGREDIENT [Suspect]
     Active Substance: UNSPECIFIED INGREDIENT
     Indication: Acute myeloid leukaemia
     Dosage: NO TREATMENT
     Route: 065
  4. CYTARABINE [Concomitant]
     Active Substance: CYTARABINE
     Indication: Acute myeloid leukaemia
     Dosage: 410 MG, UNKNOWN
     Route: 065
     Dates: start: 20210210, end: 20210216
  5. DAUNORUBICIN [Concomitant]
     Active Substance: DAUNORUBICIN
     Indication: Acute myeloid leukaemia
     Dosage: 123 MG, UNKNOWN
     Route: 065
     Dates: start: 20210210, end: 20210212
  6. PIPERACILLIN SODIUM\TAZOBACTAM SODIUM [Concomitant]
     Active Substance: PIPERACILLIN SODIUM\TAZOBACTAM SODIUM
     Indication: Product used for unknown indication
     Dosage: 3X4.5 MG
     Route: 042

REACTIONS (2)
  - Neutropenic colitis [Recovered/Resolved]
  - Parvovirus B19 infection [Recovered/Resolved]

NARRATIVE: CASE EVENT DATE: 20210223
